FAERS Safety Report 7587878-8 (Version None)
Quarter: 2011Q3

REPORT INFORMATION
  Report Type: 
  Country: None (occurrence: None)
  Receive Date: 20110705
  Receipt Date: 20110627
  Transmission Date: 20111222
  Serious: No
  Sender: FDA-Public Use
  Company Number: US-BIOGENIDEC-2011BI023438

PATIENT
  Sex: Female

DRUGS (2)
  1. TYSABRI [Suspect]
     Indication: CROHN'S DISEASE
     Route: 042
     Dates: start: 20110419
  2. TYSABRI [Suspect]
     Route: 042
     Dates: start: 20110203

REACTIONS (4)
  - EAR INFECTION [None]
  - VISION BLURRED [None]
  - SINUSITIS [None]
  - PHARYNGITIS [None]
